FAERS Safety Report 25352571 (Version 2)
Quarter: 2025Q2

REPORT INFORMATION
  Report Type: Spontaneous
  Country: IE (occurrence: IE)
  Receive Date: 20250523
  Receipt Date: 20250529
  Transmission Date: 20250716
  Serious: Yes (Hospitalization, Other)
  Sender: MYLAN
  Company Number: IE-MYLANLABS-2025M1042593

PATIENT
  Sex: Female

DRUGS (1)
  1. CLOZARIL [Suspect]
     Active Substance: CLOZAPINE
     Indication: Schizophrenia
     Dates: start: 20031106, end: 20250512

REACTIONS (4)
  - Respiratory disorder [Unknown]
  - Syncope [Unknown]
  - Fall [Unknown]
  - Medication error [Unknown]

NARRATIVE: CASE EVENT DATE: 20250512
